FAERS Safety Report 5442641-9 (Version None)
Quarter: 2007Q3

REPORT INFORMATION
  Report Type: 
  Country: None (occurrence: None)
  Receive Date: 20070904
  Receipt Date: 20070827
  Transmission Date: 20080115
  Serious: Yes (Hospitalization)
  Sender: FDA-Public Use
  Company Number: AU-ASTRAZENECA-2007AP05360

PATIENT
  Age: 82 Year
  Sex: Female

DRUGS (8)
  1. NEXIUM [Suspect]
     Route: 048
  2. ESCITALOPRAM OXALATE [Suspect]
     Route: 048
     Dates: start: 20060101, end: 20060104
  3. AMIZIDE [Suspect]
     Route: 048
     Dates: end: 20060104
  4. CARBAMAZEPINE [Suspect]
     Route: 048
     Dates: end: 20060104
  5. LERCANIDIPINE HYDROCHLORIDE [Concomitant]
  6. PRAZOSIN HCL [Concomitant]
  7. ISOSORBIDE MONONITRATE [Concomitant]
  8. SIMVASTATIN [Concomitant]

REACTIONS (3)
  - CIRCULATORY COLLAPSE [None]
  - CONVULSION [None]
  - HYPONATRAEMIA [None]
